FAERS Safety Report 6386879-5 (Version None)
Quarter: 2009Q4

REPORT INFORMATION
  Report Type: 
  Country: None (occurrence: None)
  Receive Date: 20091002
  Receipt Date: 20090929
  Transmission Date: 20100525
  Serious: Yes (Other)
  Sender: FDA-Public Use
  Company Number: US-JNJFOC-20091000383

PATIENT
  Age: 45 Year
  Sex: Female
  Weight: 81.65 kg

DRUGS (3)
  1. PEPCID COMPLETE [Suspect]
     Route: 048
  2. PEPCID COMPLETE [Suspect]
     Indication: GASTROOESOPHAGEAL REFLUX DISEASE
     Dosage: 1-2 CHEWABLE TABLETS 2-5 TIMES DAILY
     Route: 048
  3. NEXIUM [Concomitant]
     Indication: GASTROOESOPHAGEAL REFLUX DISEASE
     Dosage: 40MG 1-2 TIMES DAILY

REACTIONS (2)
  - GASTRIC HAEMORRHAGE [None]
  - OVERDOSE [None]
